FAERS Safety Report 21081658 (Version 1)
Quarter: 2022Q3

REPORT INFORMATION
  Report Type: Report from Study
  Country: CA (occurrence: CA)
  Receive Date: 20220714
  Receipt Date: 20220714
  Transmission Date: 20221027
  Serious: Yes (Other)
  Sender: FDA-Public Use
  Company Number: CA-PFIZER INC-202200925219

PATIENT

DRUGS (2)
  1. BUPIVACAINE HYDROCHLORIDE [Suspect]
     Active Substance: BUPIVACAINE HYDROCHLORIDE
     Indication: Post-traumatic headache
     Dosage: 0.5 %, (1.5 ML OF 1:1)
  2. LIDOCAINE HYDROCHLORIDE [Suspect]
     Active Substance: LIDOCAINE HYDROCHLORIDE
     Indication: Post-traumatic headache
     Dosage: 2 %, (1.5 ML OF 1:1)

REACTIONS (2)
  - Syncope [Unknown]
  - Fear of injection [Unknown]
